FAERS Safety Report 5741158 (Version 2)
Quarter: 2014Q1

REPORT INFORMATION
  Report Type: Spontaneous
  Country: FR (occurrence: FR)
  Receive Date: 20050217
  Receipt Date: 20140324
  Transmission Date: 20141002
  Serious: Yes (Hospitalization)
  Sender: FDA-Public Use
  Company Number: FR-JNJFOC-20050203112

PATIENT
  Age: 79 Year
  Sex: Male

DRUGS (7)
  1. TOPALGIC [Suspect]
     Indication: PRODUCT USED FOR UNKNOWN INDICATION
     Route: 048
     Dates: start: 20040601, end: 20040920
  2. MYOLASTAN [Concomitant]
     Route: 048
     Dates: end: 20040920
  3. NEURONTIN [Concomitant]
     Route: 048
     Dates: end: 20040921
  4. MOPRAL [Concomitant]
     Route: 065
  5. DAFALGAN [Concomitant]
     Route: 065
  6. KARDEGIC [Concomitant]
     Route: 065
  7. EQUANIL [Concomitant]
     Route: 065

REACTIONS (6)
  - Fall [Recovered/Resolved]
  - Urinary retention [Recovered/Resolved]
  - Agitation [Recovered/Resolved]
  - Faecaloma [Recovered/Resolved]
  - Malaise [Recovered/Resolved]
  - Confusional state [Recovered/Resolved]
